FAERS Safety Report 5329522-6 (Version None)
Quarter: 2007Q1

REPORT INFORMATION
  Report Type: 
  Country: None (occurrence: None)
  Receive Date: 20070223
  Receipt Date: 20060407
  Transmission Date: 20070707
  Serious: Yes (Other)
  Sender: FDA-Public Use
  Company Number: WAES 0604USA01163

PATIENT
  Age: 85 Year
  Sex: Male
  Weight: 99.7913 kg

DRUGS (9)
  1. ZOCOR [Suspect]
     Indication: BLOOD CHOLESTEROL INCREASED
     Dosage: 80 MG/DAILY/PO
     Route: 048
     Dates: end: 20060323
  2. BIAXIN [Concomitant]
  3. BUMEX [Concomitant]
  4. COREG [Concomitant]
  5. GLUCOVANCE [Concomitant]
  6. LASIX [Concomitant]
  7. PLAVIX [Concomitant]
  8. PRINIVIL [Concomitant]
  9. ALLOPURINOL [Concomitant]

REACTIONS (1)
  - RHABDOMYOLYSIS [None]
